FAERS Safety Report 11295198 (Version 1)
Quarter: 2015Q3

REPORT INFORMATION
  Report Type: Report from Study
  Country: BR (occurrence: BR)
  Receive Date: 20150723
  Receipt Date: 20150723
  Transmission Date: 20151125
  Serious: Yes (Other)
  Sender: FDA-Public Use
  Company Number: PHHY2015BR085863

PATIENT
  Sex: Male

DRUGS (2)
  1. FORASEQ [Suspect]
     Active Substance: BUDESONIDE\FORMOTEROL FUMARATE
     Indication: BRONCHITIS
     Dosage: 1 DF, BID
     Route: 065
  2. GALVUS MET [Suspect]
     Active Substance: METFORMIN HYDROCHLORIDE\VILDAGLIPTIN
     Indication: BLOOD GLUCOSE ABNORMAL
     Dosage: 1 DF, BID (1 IN THE MORNING, 1 IN THE EVENING)
     Route: 065

REACTIONS (5)
  - Limb injury [Recovering/Resolving]
  - Device dislocation [Recovering/Resolving]
  - Oedema peripheral [Recovering/Resolving]
  - Fall [Recovering/Resolving]
  - Localised infection [Recovering/Resolving]
